FAERS Safety Report 26041000 (Version 1)
Quarter: 2025Q4

REPORT INFORMATION
  Report Type: Spontaneous
  Country: BR (occurrence: BR)
  Receive Date: 20251113
  Receipt Date: 20251113
  Transmission Date: 20260118
  Serious: Yes (Other)
  Sender: AMGEN
  Company Number: BR-AMGEN-BRASP2025219472

PATIENT

DRUGS (3)
  1. INFLIXIMAB [Suspect]
     Active Substance: INFLIXIMAB
     Indication: Colitis ulcerative
     Dosage: UNK
     Route: 065
  2. ADALIMUMAB [Suspect]
     Active Substance: ADALIMUMAB
     Indication: Colitis ulcerative
     Dosage: UNK
     Route: 065
  3. USTEKINUMAB [Suspect]
     Active Substance: USTEKINUMAB
     Indication: Colitis ulcerative
     Dosage: UNK
     Route: 065

REACTIONS (12)
  - Tuberculosis [Unknown]
  - Psoriasis [Unknown]
  - Urinary tract infection [Unknown]
  - Pneumonia [Unknown]
  - Folliculitis [Unknown]
  - Treatment failure [Unknown]
  - Headache [Unknown]
  - Injection site rash [Unknown]
  - Arthralgia [Unknown]
  - Pruritus [Unknown]
  - Urticaria [Unknown]
  - Respiratory tract infection [Unknown]
